FAERS Safety Report 20764948 (Version 1)
Quarter: 2022Q2

REPORT INFORMATION
  Report Type: Spontaneous
  Country: US (occurrence: US)
  Receive Date: 20220428
  Receipt Date: 20220428
  Transmission Date: 20220721
  Serious: No
  Sender: FDA-Public Use
  Company Number: US-SA-SAC20220421001534

PATIENT
  Age: 72 Year
  Sex: Male

DRUGS (9)
  1. DUPIXENT [Suspect]
     Active Substance: DUPILUMAB
     Indication: Dermatitis atopic
     Dosage: 1 DF, QOW
     Route: 058
     Dates: start: 20200714
  2. TIMOLOL MALEATE [Concomitant]
     Active Substance: TIMOLOL MALEATE
  3. LISINOPRIL [Concomitant]
     Active Substance: LISINOPRIL
  4. CLOBETASOL [Concomitant]
     Active Substance: CLOBETASOL
  5. TRIAMCINOLON [TRIAMCINOLONE ACETONIDE] [Concomitant]
  6. BUPIVACAINE [Concomitant]
     Active Substance: BUPIVACAINE
  7. NIFEDIPINE [Concomitant]
     Active Substance: NIFEDIPINE
  8. SIMVASTATIN [Concomitant]
     Active Substance: SIMVASTATIN
  9. GEMFIBROZIL [Concomitant]
     Active Substance: GEMFIBROZIL

REACTIONS (3)
  - Vision blurred [Not Recovered/Not Resolved]
  - Dry skin [Recovering/Resolving]
  - Pruritus [Recovering/Resolving]

NARRATIVE: CASE EVENT DATE: 20220414
